FAERS Safety Report 5391706-9 (Version None)
Quarter: 2007Q3

REPORT INFORMATION
  Report Type: 
  Country: None (occurrence: None)
  Receive Date: 20070719
  Receipt Date: 20070711
  Transmission Date: 20080115
  Serious: Yes (Hospitalization, Disabling)
  Sender: FDA-Public Use
  Company Number: SG-MERCK-0705SGP00011

PATIENT
  Age: 81 Year
  Sex: Male
  Weight: 51 kg

DRUGS (2)
  1. INVANZ [Suspect]
     Indication: ESCHERICHIA BACTERAEMIA
     Route: 041
     Dates: start: 20070202, end: 20070208
  2. CIPROFLOXACIN [Concomitant]
     Route: 065

REACTIONS (2)
  - GAIT DISTURBANCE [None]
  - MUSCULAR WEAKNESS [None]
